FAERS Safety Report 6276248-0 (Version None)
Quarter: 2009Q3

REPORT INFORMATION
  Report Type: 
  Country: None (occurrence: None)
  Receive Date: 20090720
  Receipt Date: 20090703
  Transmission Date: 20100115
  Serious: Yes (Other)
  Sender: FDA-Public Use
  Company Number: DSA_34013_2009

PATIENT
  Age: 44 Year
  Sex: Female

DRUGS (1)
  1. DILTIAZEM [Suspect]
     Indication: HYPERTENSION
     Dosage: 60 MG QD, ORAL
     Route: 048
     Dates: start: 20090325, end: 20090511

REACTIONS (1)
  - ONYCHOLYSIS [None]
